FAERS Safety Report 23286316 (Version 1)
Quarter: 2023Q4

REPORT INFORMATION
  Report Type: Spontaneous
  Country: NL (occurrence: NL)
  Receive Date: 20231212
  Receipt Date: 20231212
  Transmission Date: 20240110
  Serious: Yes (Other)
  Sender: FDA-Public Use
  Company Number: None

PATIENT
  Age: 46 Year
  Sex: Male
  Weight: 93 kg

DRUGS (9)
  1. RISPERDAL CONSTA [Suspect]
     Active Substance: RISPERIDONE
     Indication: Product used for unknown indication
     Dosage: OM DE TWEEDE WEKEN
     Route: 065
     Dates: start: 20220509
  2. RISPERDAL CONSTA [Suspect]
     Active Substance: RISPERIDONE
  3. RISPERDAL CONSTA [Suspect]
     Active Substance: RISPERIDONE
  4. RISPERDAL CONSTA [Suspect]
     Active Substance: RISPERIDONE
  5. RISPERDAL [Concomitant]
     Active Substance: RISPERIDONE
     Dosage: OMHULDE TABLET, 0,5 MG (MILLIGRAM)
  6. AKTIPROL [Concomitant]
     Dosage: TABLET, 50 MG (MILLIGRAM)
  7. ABILIFY [Concomitant]
     Active Substance: ARIPIPRAZOLE
     Dosage: TABLET, 15 MG (MILLIGRAM)
  8. PENFLURIDOL [Concomitant]
     Active Substance: PENFLURIDOL
     Dosage: TABLET, 20 MG (MILLIGRAM)
  9. ZYPREXA [Concomitant]
     Active Substance: OLANZAPINE
     Dosage: SMELTTABLET, 15 MG (MILLIGRAM)

REACTIONS (3)
  - Substance use [Recovering/Resolving]
  - Tobacco user [Recovering/Resolving]
  - Alcoholism [Recovering/Resolving]
